FAERS Safety Report 5297877-7 (Version None)
Quarter: 2007Q2

REPORT INFORMATION
  Report Type: 
  Country: None (occurrence: None)
  Receive Date: 20070413
  Receipt Date: 20070413
  Transmission Date: 20071010
  Serious: No
  Sender: FDA-Public Use
  Company Number: None

PATIENT
  Sex: Male
  Weight: 67 kg

DRUGS (4)
  1. BEVACIZUMAB (RHUMAB VEGF) [Suspect]
     Dosage: 1303 MG
     Dates: end: 20070321
  2. FLUOROURACIL [Suspect]
     Dosage: 19264 MG
     Dates: end: 20070321
  3. LEUCOVORIN CALCIUM [Suspect]
     Dosage: 2752 MG
     Dates: end: 20070321
  4. ELOXATIN [Suspect]
     Dosage: 585 MG
     Dates: end: 20070321

REACTIONS (5)
  - ABDOMINAL PAIN LOWER [None]
  - ABDOMINAL PAIN UPPER [None]
  - CANCER PAIN [None]
  - DRUG INEFFECTIVE [None]
  - INADEQUATE ANALGESIA [None]
